FAERS Safety Report 25717887 (Version 1)
Quarter: 2025Q3

REPORT INFORMATION
  Report Type: Spontaneous
  Country: EU (occurrence: EU)
  Receive Date: 20250822
  Receipt Date: 20250822
  Transmission Date: 20251021
  Serious: Yes (Other)
  Sender: VISTAPHARM
  Company Number: EU-VISTAPHARM-2025-IT-000048

PATIENT
  Age: 26 Year
  Sex: Female

DRUGS (6)
  1. PHENYTOIN [Suspect]
     Active Substance: PHENYTOIN
     Indication: Status epilepticus
  2. CENOBAMATE [Suspect]
     Active Substance: CENOBAMATE
     Indication: Status epilepticus
  3. LEVETIRACETAM [Concomitant]
     Active Substance: LEVETIRACETAM
  4. VALPROATE [Concomitant]
     Active Substance: VALPROIC ACID
  5. DIAZEPAM [Concomitant]
     Active Substance: DIAZEPAM
  6. LACOSAMIDE [Concomitant]
     Active Substance: LACOSAMIDE

REACTIONS (2)
  - Drug interaction [Unknown]
  - Toxicity to various agents [Unknown]
